FAERS Safety Report 5067500-5 (Version None)
Quarter: 2006Q3

REPORT INFORMATION
  Report Type: 
  Country: None (occurrence: None)
  Receive Date: 20060802
  Receipt Date: 20060607
  Transmission Date: 20061208
  Serious: Yes (Death)
  Sender: FDA-Public Use
  Company Number: GB-BRISTOL-MYERS SQUIBB COMPANY-13405139

PATIENT
  Age: 39 Year
  Sex: Male
  Weight: 75 kg

DRUGS (3)
  1. KENACORT [Suspect]
     Indication: DYSPNOEA
     Route: 030
     Dates: start: 20060327
  2. ERYTHROMYCIN [Concomitant]
  3. ACTIFED [Concomitant]

REACTIONS (1)
  - ANAPHYLACTIC REACTION [None]
